FAERS Safety Report 18695710 (Version 5)
Quarter: 2024Q3

REPORT INFORMATION
  Report Type: Spontaneous
  Country: US (occurrence: US)
  Receive Date: 20210104
  Receipt Date: 20240705
  Transmission Date: 20241017
  Serious: Yes (Hospitalization)
  Sender: PFIZER
  Company Number: US-PFIZER INC-2020518930

PATIENT
  Age: 61 Year
  Sex: Female
  Weight: 90.72 kg

DRUGS (2)
  1. XELJANZ XR [Suspect]
     Active Substance: TOFACITINIB CITRATE
     Indication: Psoriatic arthropathy
     Dosage: 11 MG, 1X/DAY
     Route: 048
     Dates: start: 2019, end: 2020
  2. XELJANZ XR [Suspect]
     Active Substance: TOFACITINIB CITRATE
     Indication: Rheumatoid arthritis
     Dosage: UNK

REACTIONS (4)
  - COVID-19 [Unknown]
  - Knee arthroplasty [Unknown]
  - Confusional state [Unknown]
  - Tooth infection [Unknown]

NARRATIVE: CASE EVENT DATE: 20200301
